FAERS Safety Report 6170389-4 (Version None)
Quarter: 2009Q2

REPORT INFORMATION
  Report Type: 
  Country: None (occurrence: None)
  Receive Date: 20090428
  Receipt Date: 20090417
  Transmission Date: 20091009
  Serious: Yes (Hospitalization)
  Sender: FDA-Public Use
  Company Number: CA-PFIZER INC-2009181474

PATIENT
  Sex: Female
  Weight: 68.027 kg

DRUGS (10)
  1. ARTHROTEC [Suspect]
     Indication: OSTEOARTHRITIS
     Dosage: 50 MG, 1X/DAY
     Dates: end: 20090303
  2. ARTHROTEC [Suspect]
     Dosage: 75 MG, 1X/DAY
     Dates: start: 20090201
  3. FELODIPINE [Concomitant]
     Indication: HYPERTENSION
     Dosage: 5 MG, 1X/DAY
     Dates: start: 20080101
  4. RENEDIL [Concomitant]
     Indication: HYPERTENSION
     Dosage: 2.5 MG, 1X/DAY
     Dates: start: 20000101
  5. RENEDIL [Concomitant]
     Dosage: UNK
  6. ATACAND [Concomitant]
     Indication: HYPERTENSION
     Dosage: 8 MG, 1X/DAY
     Dates: start: 20000101
  7. PRAVASTATIN [Concomitant]
     Indication: HYPERTENSION
     Dosage: 40 MG, 1X/DAY
     Dates: start: 20090101
  8. APO-AMITRIPTYLINE [Concomitant]
     Indication: FIBROMYALGIA
     Dosage: 25 MG, 1X/DAY
     Dates: start: 19900101
  9. ENTROPHEN [Concomitant]
     Indication: ARTHRITIS
     Dosage: 650 MG, 2X/DAY
     Dates: start: 20090201, end: 20090301
  10. VITALUX [Concomitant]
     Indication: VITAMIN SUPPLEMENTATION
     Dosage: UNK
     Dates: start: 20000101

REACTIONS (3)
  - BLOOD PRESSURE DECREASED [None]
  - DRUG HYPERSENSITIVITY [None]
  - LOSS OF CONSCIOUSNESS [None]
